FAERS Safety Report 5194540-8 (Version None)
Quarter: 2006Q4

REPORT INFORMATION
  Report Type: 
  Country: None (occurrence: None)
  Receive Date: 20061221
  Receipt Date: 20061220
  Transmission Date: 20070319
  Serious: Yes (Other)
  Sender: FDA-Public Use
  Company Number: FRWYE483609NOV06

PATIENT
  Age: 39 Year
  Sex: Female

DRUGS (7)
  1. TRINORDIOL (LEVONORGESTREL/ ETHINYL ESTRADIOL, TABLET) LOT NO.: UNKNOW [Suspect]
     Indication: CONTRACEPTION
     Dates: end: 20060101
  2. BUTAZOLIDIN [Suspect]
     Dosage: 300 MG TOTAL DAILY
     Dates: end: 20060101
  3. ENBREL [Suspect]
     Indication: ANKYLOSING SPONDYLITIS
     Dosage: 25 MG 2X PER 1 WK
     Route: 058
     Dates: start: 20060807, end: 20061023
  4. LEVOTHYROXINE SODIUM [Suspect]
     Indication: THYROIDITIS
     Dosage: 75 UG 1X PER 1 DAY
     Route: 048
     Dates: end: 20060101
  5. LEXOMIL (BROMAZEPAM, 0) [Suspect]
     Dosage: 0.5 TABLET 1X PER 1 DAY
     Route: 048
  6. OMEPRAZOLE [Suspect]
     Dosage: 20 MG 1X PER 1 DAY
     Route: 048
     Dates: end: 20060101
  7. RIFAMPIN AND ISONIAZID [Suspect]
     Indication: TUBERCULOSIS SKIN TEST POSITIVE

REACTIONS (3)
  - DRUG INEFFECTIVE [None]
  - DRUG INTERACTION INHIBITION [None]
  - UNINTENDED PREGNANCY [None]
